FAERS Safety Report 25146710 (Version 1)
Quarter: 2025Q2

REPORT INFORMATION
  Report Type: Spontaneous
  Country: US (occurrence: US)
  Receive Date: 20250401
  Receipt Date: 20250401
  Transmission Date: 20250717
  Serious: No
  Sender: Alora Pharma
  Company Number: US-OSMOTICA PHARMACEUTICALS-2024ALO00079

PATIENT
  Age: 71 Year
  Sex: Female
  Weight: 108.84 kg

DRUGS (2)
  1. OXYBUTYNIN CHLORIDE [Suspect]
     Active Substance: OXYBUTYNIN CHLORIDE
     Dosage: 10 MG, 1X/DAY
     Route: 048
     Dates: start: 20240311, end: 202403
  2. OXYBUTYNIN CHLORIDE [Suspect]
     Active Substance: OXYBUTYNIN CHLORIDE
     Dosage: 10 MG, 1X/DAY
     Route: 048
     Dates: start: 20240312, end: 202403

REACTIONS (4)
  - Cough [Recovered/Resolved]
  - Urticaria [Recovering/Resolving]
  - Headache [Recovered/Resolved]
  - Product substitution issue [Recovered/Resolved]

NARRATIVE: CASE EVENT DATE: 20240301
